FAERS Safety Report 18119926 (Version 1)
Quarter: 2020Q3

REPORT INFORMATION
  Report Type: Spontaneous
  Country: DE (occurrence: DE)
  Receive Date: 20200806
  Receipt Date: 20200806
  Transmission Date: 20201103
  Serious: Yes (Hospitalization)
  Sender: FDA-Public Use
  Company Number: DE-ASTRAZENECA-2020SE97687

PATIENT
  Sex: Female
  Weight: 75 kg

DRUGS (9)
  1. OSIMERTINIB. [Suspect]
     Active Substance: OSIMERTINIB
     Dosage: NK
     Route: 048
  2. RAMIPRIL. [Concomitant]
     Active Substance: RAMIPRIL
     Dosage: 2.5 MG, 1?0?0?0
  3. LEVOTHYROXIN?SODIUM [Concomitant]
     Dosage: 25 ??G, 1?0?0?0
  4. SPIRONOLACTON [Concomitant]
     Active Substance: SPIRONOLACTONE
     Dosage: 50 MG, 0.5?0?0?0
  5. MAGNESIUM [Concomitant]
     Active Substance: MAGNESIUM
     Dosage: 150 MG, 0?1?0?0
  6. LORAZEPAM. [Concomitant]
     Active Substance: LORAZEPAM
     Dosage: 1.0MG AS REQUIRED
  7. TORASEMID [Concomitant]
     Active Substance: TORSEMIDE
     Dosage: 10 MG, 1?0?0?0
  8. LEVOTHYROXIN?SODIUM [Concomitant]
     Dosage: 100 ??G, 1?0?0?0
  9. METOPROLOL. [Concomitant]
     Active Substance: METOPROLOL
     Dosage: 47.5 MG, 2?0?2?0

REACTIONS (3)
  - Paraesthesia [Unknown]
  - Dyspnoea [Unknown]
  - Ejection fraction decreased [Unknown]
